FAERS Safety Report 9830968 (Version 3)
Quarter: 2014Q1

REPORT INFORMATION
  Report Type: Spontaneous
  Country: JP (occurrence: JP)
  Receive Date: 20140120
  Receipt Date: 20140203
  Transmission Date: 20141002
  Serious: Yes (Death, Hospitalization)
  Sender: FDA-Public Use
  Company Number: PHHY2014JP005783

PATIENT
  Age: 80 Year
  Sex: Male

DRUGS (1)
  1. RIVASTIGMIN [Suspect]
     Indication: DEMENTIA ALZHEIMER^S TYPE
     Dosage: 18 MG, DAILY
     Route: 062

REACTIONS (1)
  - Cerebral infarction [Fatal]
